FAERS Safety Report 23135335 (Version 1)
Quarter: 2023Q4

REPORT INFORMATION
  Report Type: Report from Study
  Country: AT (occurrence: AT)
  Receive Date: 20231101
  Receipt Date: 20231101
  Transmission Date: 20240109
  Serious: Yes (Other)
  Sender: FDA-Public Use
  Company Number: AT-PFM-2023-05608

PATIENT
  Age: 63 Year
  Sex: Female

DRUGS (41)
  1. ENCORAFENIB [Suspect]
     Active Substance: ENCORAFENIB
     Indication: Malignant melanoma
     Dosage: 450 MG, DAILY
     Route: 048
     Dates: start: 20230117, end: 20230412
  2. BINIMETINIB [Suspect]
     Active Substance: BINIMETINIB
     Indication: Malignant melanoma
     Dosage: 45 MG, BID (2/DAY)
     Route: 048
     Dates: start: 20230117, end: 20230412
  3. HYDROMORPHONE HYDROCHLORIDE [Concomitant]
     Active Substance: HYDROMORPHONE HYDROCHLORIDE
     Indication: Prophylaxis
     Dosage: UNK
     Route: 065
     Dates: start: 20221209, end: 20230131
  4. HYDROMORPHONE HYDROCHLORIDE [Concomitant]
     Active Substance: HYDROMORPHONE HYDROCHLORIDE
     Dosage: UNK
     Dates: start: 20230206
  5. LASIX [Concomitant]
     Active Substance: FUROSEMIDE
     Dosage: UNK
     Route: 065
     Dates: start: 20230112, end: 20230218
  6. BISOPROLOL FUMARATE [Concomitant]
     Active Substance: BISOPROLOL FUMARATE
     Dosage: UNK
     Route: 065
     Dates: start: 20221212
  7. MEPRIL [GLIMEPIRIDE] [Concomitant]
     Dosage: UNK
     Route: 065
     Dates: start: 20221213
  8. DRONABINOL [Concomitant]
     Active Substance: DRONABINOL
     Indication: Prophylaxis
     Dosage: UNK
     Route: 065
     Dates: start: 20230112, end: 20230211
  9. ENOXAPARIN SODIUM [Concomitant]
     Active Substance: ENOXAPARIN SODIUM
     Indication: Prophylaxis
     Dosage: UNK
     Route: 065
     Dates: start: 20230118, end: 20230131
  10. CALCIUM CHLORIDE\MAGNESIUM CHLORIDE\POTASSIUM CHLORIDE\SODIUM ACETATE\ [Concomitant]
     Active Substance: CALCIUM CHLORIDE\MAGNESIUM CHLORIDE\POTASSIUM CHLORIDE\SODIUM ACETATE\SODIUM CHLORIDE
     Indication: Prophylaxis
     Dosage: UNK
     Route: 065
     Dates: start: 20230112, end: 20230131
  11. CALCIUM CHLORIDE\MAGNESIUM CHLORIDE\POTASSIUM CHLORIDE\SODIUM ACETATE\ [Concomitant]
     Active Substance: CALCIUM CHLORIDE\MAGNESIUM CHLORIDE\POTASSIUM CHLORIDE\SODIUM ACETATE\SODIUM CHLORIDE
     Dosage: UNK
     Route: 065
     Dates: start: 20230206, end: 20230208
  12. CALCIUM CHLORIDE\MAGNESIUM CHLORIDE\POTASSIUM CHLORIDE\SODIUM ACETATE\ [Concomitant]
     Active Substance: CALCIUM CHLORIDE\MAGNESIUM CHLORIDE\POTASSIUM CHLORIDE\SODIUM ACETATE\SODIUM CHLORIDE
     Dosage: UNK
     Route: 065
     Dates: start: 20230217, end: 20230218
  13. ELOZELL SPEZIAL [Concomitant]
     Indication: Prophylaxis
     Dosage: UNK
     Route: 065
     Dates: start: 20230113, end: 20230113
  14. ELOZELL SPEZIAL [Concomitant]
     Dosage: UNK
     Route: 065
     Dates: start: 20230120, end: 20230131
  15. TRIMIX [AMINO ACIDS NOS;FATS NOS;GLUCOSE] [Concomitant]
     Indication: Prophylaxis
     Dosage: UNK
     Route: 065
     Dates: start: 20230112, end: 20230131
  16. SOLUVIT N [BIOTIN;CYANOCOBALAMIN;FOLIC ACID;NICOTINAMIDE;PANTOTHENATE [Concomitant]
     Indication: Prophylaxis
     Dosage: UNK
     Route: 065
     Dates: start: 20230112, end: 20230131
  17. VITALIPID [ERGOCALCIFEROL;PHYTOMENADIONE;RETINOL PALMITATE;TOCOPHEROL] [Concomitant]
     Indication: Prophylaxis
     Dosage: UNK
     Route: 065
     Dates: start: 20230112, end: 20230131
  18. METAMIZOL [Concomitant]
     Active Substance: METAMIZOLE SODIUM
     Indication: Prophylaxis
     Dosage: UNK
     Route: 065
     Dates: start: 20230127, end: 20230129
  19. ACETAMINOPHEN\CAFFEINE\PROPYPHENAZONE [Concomitant]
     Active Substance: ACETAMINOPHEN\CAFFEINE\PROPYPHENAZONE
     Indication: Prophylaxis
     Dosage: UNK
     Route: 065
     Dates: start: 20230129
  20. SEROQUEL [Concomitant]
     Active Substance: QUETIAPINE FUMARATE
     Indication: Prophylaxis
     Dosage: UNK
     Route: 065
     Dates: start: 20230123
  21. PASSEDAN [Concomitant]
     Indication: Prophylaxis
     Dosage: UNK
     Route: 065
     Dates: start: 20221220, end: 20230131
  22. OMNI BIOTIC 6 [Concomitant]
     Indication: Prophylaxis
     Dosage: UNK
     Route: 065
     Dates: start: 20230127, end: 20230131
  23. SUCRALAN [Concomitant]
     Indication: Prophylaxis
     Dosage: UNK
     Route: 065
     Dates: start: 20230129, end: 20230131
  24. BUTYLSCOPOLAMINE BROMIDE [Concomitant]
     Active Substance: BUTYLSCOPOLAMINE BROMIDE
     Indication: Prophylaxis
     Dosage: UNK
     Route: 065
     Dates: start: 20230127, end: 20230131
  25. CEOLAT [Concomitant]
     Indication: Prophylaxis
     Dosage: UNK
     Route: 065
     Dates: start: 20230112, end: 20230120
  26. POLYETHYLENE GLYCOL 3350\POTASSIUM CHLORIDE\SODIUM BICARBONATE\SODIUM [Concomitant]
     Active Substance: POLYETHYLENE GLYCOL 3350\POTASSIUM CHLORIDE\SODIUM BICARBONATE\SODIUM CHLORIDE
     Indication: Prophylaxis
     Dosage: UNK
     Route: 065
     Dates: start: 20221209
  27. MORPHINE HYDROCHLORIDE [Concomitant]
     Active Substance: MORPHINE HYDROCHLORIDE
     Indication: Prophylaxis
     Dosage: UNK
     Route: 065
     Dates: start: 20230127, end: 20230131
  28. MORPHINE HYDROCHLORIDE [Concomitant]
     Active Substance: MORPHINE HYDROCHLORIDE
     Dosage: UNK
     Route: 065
     Dates: start: 20230206, end: 20230211
  29. OXAZEPAM [Concomitant]
     Active Substance: OXAZEPAM
     Indication: Prophylaxis
     Dosage: UNK
     Route: 065
     Dates: start: 20230116, end: 20230117
  30. ASTEMIZOLE [Concomitant]
     Active Substance: ASTEMIZOLE
     Indication: Prophylaxis
     Dosage: UNK
     Route: 065
     Dates: start: 20230116
  31. HUMAN RED BLOOD CELL [Concomitant]
     Active Substance: HUMAN RED BLOOD CELL
     Indication: Anaemia
     Dosage: UNK
     Route: 065
     Dates: start: 20230210, end: 20230210
  32. HUMAN RED BLOOD CELL [Concomitant]
     Active Substance: HUMAN RED BLOOD CELL
     Dosage: UNK
     Route: 065
     Dates: start: 20230217, end: 20230218
  33. KYTRIL [Concomitant]
     Active Substance: GRANISETRON HYDROCHLORIDE
     Indication: Prophylaxis
     Dosage: UNK
     Route: 065
     Dates: start: 20230207, end: 20230211
  34. KYTRIL [Concomitant]
     Active Substance: GRANISETRON HYDROCHLORIDE
     Dosage: UNK
     Route: 065
     Dates: start: 20230217
  35. KCL RETARD SLOW K [Concomitant]
     Indication: Prophylaxis
     Dosage: UNK
     Route: 065
     Dates: start: 20230207
  36. ZYPREXA [Concomitant]
     Active Substance: OLANZAPINE
     Indication: Prophylaxis
     Dosage: UNK
     Route: 065
     Dates: start: 20230207
  37. ZOFRAN [Concomitant]
     Active Substance: ONDANSETRON HYDROCHLORIDE
     Indication: Prophylaxis
     Dosage: UNK
     Route: 065
     Dates: start: 20230208
  38. DEXAMETHASONE [Concomitant]
     Active Substance: DEXAMETHASONE
     Indication: Prophylaxis
     Dosage: UNK
     Route: 065
     Dates: start: 20230206, end: 20230211
  39. PANTOPRAZOLE SODIUM [Concomitant]
     Active Substance: PANTOPRAZOLE SODIUM
     Indication: Prophylaxis
     Dosage: UNK
     Route: 065
     Dates: start: 20230217
  40. CYKLOKAPRON [Concomitant]
     Active Substance: TRANEXAMIC ACID
     Indication: Prophylaxis
     Dosage: UNK
     Route: 065
     Dates: start: 20230218
  41. FUROSEMIDE [Concomitant]
     Active Substance: FUROSEMIDE
     Dosage: UNK
     Route: 065
     Dates: start: 20230131

REACTIONS (3)
  - Hypokalaemia [Recovered/Resolved]
  - Nausea [Recovered/Resolved]
  - Vomiting [Recovered/Resolved]

NARRATIVE: CASE EVENT DATE: 20230117
